FAERS Safety Report 24610765 (Version 1)
Quarter: 2024Q4

REPORT INFORMATION
  Report Type: Spontaneous
  Country: FR (occurrence: FR)
  Receive Date: 20241112
  Receipt Date: 20241112
  Transmission Date: 20250115
  Serious: Yes (Life-Threatening, Other)
  Sender: FRESENIUS KABI
  Company Number: None

PATIENT
  Age: 25 Year
  Sex: Female
  Weight: 77 kg

DRUGS (10)
  1. LIDOCAINE [Suspect]
     Active Substance: LIDOCAINE
     Indication: General anaesthesia
     Dosage: 80 MILLIGRAM, 1 DOSAGE TOTAL?THERAPY START AND END TIME: 22:51
     Route: 042
     Dates: start: 20240722, end: 20240722
  2. LIDOCAINE [Suspect]
     Active Substance: LIDOCAINE
     Dosage: 80 MILLIGRAM, 1 DOSAGE TOTAL?THERAPY START AND END TIME: 22:51
     Route: 042
     Dates: start: 20240722, end: 20240722
  3. LIDOCAINE [Suspect]
     Active Substance: LIDOCAINE
     Dosage: 80 MILLIGRAM, 1 DOSAGE TOTAL?THERAPY START AND END TIME: 22:51
     Route: 042
     Dates: start: 20240722, end: 20240722
  4. LIDOCAINE [Suspect]
     Active Substance: LIDOCAINE
     Dosage: 80 MILLIGRAM, 1 DOSAGE TOTAL?THERAPY START AND END TIME: 22:51
     Route: 042
     Dates: start: 20240722, end: 20240722
  5. ATRACURIUM [Suspect]
     Active Substance: ATRACURIUM
     Indication: General anaesthesia
     Dosage: 40 MILLIGRAM, 1 DOSAGE TOTAL
     Route: 042
     Dates: start: 20240722, end: 20240722
  6. ATRACURIUM [Suspect]
     Active Substance: ATRACURIUM
     Dosage: 40 MILLIGRAM, 1 DOSAGE TOTAL
     Route: 042
     Dates: start: 20240722, end: 20240722
  7. SUCCINYLCHOLINE CHLORIDE [Suspect]
     Active Substance: SUCCINYLCHOLINE CHLORIDE
     Indication: General anaesthesia
     Dosage: 100 MILLIGRAM, 1 DOSAGE TOTAL
     Route: 042
     Dates: start: 20240722, end: 20240722
  8. SUCCINYLCHOLINE CHLORIDE [Suspect]
     Active Substance: SUCCINYLCHOLINE CHLORIDE
     Dosage: 100 MILLIGRAM, 1 DOSAGE TOTAL
     Route: 042
     Dates: start: 20240722, end: 20240722
  9. DEXAMETHASONE [Suspect]
     Active Substance: DEXAMETHASONE
     Indication: General anaesthesia
     Dosage: 8 MILLIGRAM, 1 DOSAGE TOTAL
     Route: 042
     Dates: start: 20240722, end: 20240722
  10. DEXAMETHASONE [Suspect]
     Active Substance: DEXAMETHASONE
     Dosage: 8 MILLIGRAM, 1 DOSAGE TOTAL
     Route: 042
     Dates: start: 20240722, end: 20240722

REACTIONS (1)
  - Anaphylactic shock [Recovered/Resolved]

NARRATIVE: CASE EVENT DATE: 20240722
